FAERS Safety Report 12742354 (Version 1)
Quarter: 2016Q3

REPORT INFORMATION
  Report Type: Spontaneous
  Country: US (occurrence: US)
  Receive Date: 20160914
  Receipt Date: 20160914
  Transmission Date: 20161109
  Serious: Yes (Hospitalization)
  Sender: FDA-Public Use
  Company Number: None

PATIENT
  Age: 52 Year
  Sex: Male
  Weight: 126 kg

DRUGS (2)
  1. COLCHICINE. [Concomitant]
     Active Substance: COLCHICINE
  2. ALLOPURINOL. [Suspect]
     Active Substance: ALLOPURINOL
     Indication: GOUT
     Route: 048

REACTIONS (2)
  - Jaundice cholestatic [None]
  - Pancreatitis [None]

NARRATIVE: CASE EVENT DATE: 20160909
